FAERS Safety Report 16848221 (Version 1)
Quarter: 2019Q3

REPORT INFORMATION
  Report Type: Report from Study
  Country: None (occurrence: GB)
  Receive Date: 20190925
  Receipt Date: 20190925
  Transmission Date: 20191005
  Serious: Yes (Other)
  Sender: FDA-Public Use
  Company Number: GB-ABBVIE-19K-167-2929872-00

PATIENT
  Sex: Male

DRUGS (3)
  1. METOJECT [Suspect]
     Active Substance: METHOTREXATE SODIUM
     Indication: PRODUCT USED FOR UNKNOWN INDICATION
     Route: 065
  2. HUMIRA [Suspect]
     Active Substance: ADALIMUMAB
     Indication: UVEITIS
     Route: 058
     Dates: start: 20180911
  3. METOJECT [Suspect]
     Active Substance: METHOTREXATE SODIUM
     Dosage: DOSE REDUCED
     Route: 065

REACTIONS (1)
  - Drug-induced liver injury [Unknown]
